FAERS Safety Report 10525604 (Version 1)
Quarter: 2014Q4

REPORT INFORMATION
  Report Type: Spontaneous
  Country: US (occurrence: US)
  Receive Date: 20141017
  Receipt Date: 20141017
  Transmission Date: 20150528
  Serious: Yes (Other)
  Sender: FDA-Public Use
  Company Number: US-ASTRAZENECA-2014SE76939

PATIENT
  Age: 73 Year
  Sex: Male
  Weight: 82.1 kg

DRUGS (7)
  1. METOPROLOL [Suspect]
     Active Substance: METOPROLOL
     Indication: BLOOD PRESSURE ABNORMAL
     Dosage: GENERIC 25 MG TWO TIMES A DAY
     Route: 048
  2. PRILOSEC OTC [Suspect]
     Active Substance: OMEPRAZOLE MAGNESIUM
     Indication: GASTRIC HAEMORRHAGE
     Dosage: DAILY
     Route: 048
     Dates: start: 1999
  3. THYROID REPLACEMENT MEDICATION [Concomitant]
     Indication: HYPOTHYROIDISM
     Route: 048
     Dates: start: 1965
  4. TOPROL XL [Suspect]
     Active Substance: METOPROLOL SUCCINATE
     Indication: BLOOD PRESSURE ABNORMAL
     Route: 048
  5. ASPIRIN. [Concomitant]
     Active Substance: ASPIRIN
     Route: 048
     Dates: start: 1997
  6. TAMSULOSIN [Concomitant]
     Active Substance: TAMSULOSIN
     Indication: BENIGN PROSTATIC HYPERPLASIA
  7. AVODART [Concomitant]
     Active Substance: DUTASTERIDE
     Indication: BENIGN PROSTATIC HYPERPLASIA

REACTIONS (7)
  - Benign prostatic hyperplasia [Unknown]
  - Blood pressure increased [Unknown]
  - Aortic dilatation [Unknown]
  - Hypertension [Not Recovered/Not Resolved]
  - Intentional product misuse [Unknown]
  - Drug ineffective [Recovered/Resolved]
  - Heart rate abnormal [Unknown]

NARRATIVE: CASE EVENT DATE: 1999
